FAERS Safety Report 9704794 (Version 4)
Quarter: 2014Q1

REPORT INFORMATION
  Report Type: Spontaneous
  Country: JP (occurrence: JP)
  Receive Date: 20131122
  Receipt Date: 20140311
  Transmission Date: 20141002
  Serious: Yes (Other)
  Sender: FDA-Public Use
  Company Number: JP-ABBVIE-13P-087-1170056-00

PATIENT
  Age: 33 Year
  Sex: Female

DRUGS (4)
  1. NORVIR [Suspect]
     Indication: HIV INFECTION
  2. KALETRA [Suspect]
     Indication: HIV INFECTION
  3. ATAZANAVIR [Suspect]
     Indication: HIV INFECTION
  4. TRUVADA [Suspect]
     Indication: HIV INFECTION

REACTIONS (1)
  - Nephritis autoimmune [Recovering/Resolving]
